FAERS Safety Report 19903358 (Version 1)
Quarter: 2021Q4

REPORT INFORMATION
  Report Type: Spontaneous
  Country: GB (occurrence: GB)
  Receive Date: 20211001
  Receipt Date: 20211001
  Transmission Date: 20220303
  Serious: Yes (Disabling, Other)
  Sender: FDA-Public Use
  Company Number: None

PATIENT
  Age: 38 Year
  Sex: Female
  Weight: 66 kg

DRUGS (4)
  1. HYDROCORTISONE [Suspect]
     Active Substance: HYDROCORTISONE
     Indication: Eczema
     Dosage: HYDROCORTISONE, BETNOVATE, DERMOVATE USED ONCE OR TWICE A DAY, ONGOING
     Route: 061
     Dates: start: 19860101, end: 20210613
  2. BETNOVATE [Suspect]
     Active Substance: BETAMETHASONE
     Indication: Eczema
     Dosage: HYDROCORTISONE, BETNOVATE, DERMOVATE USED ONCE ORTWICE A DAY, ONGOING
     Route: 061
     Dates: start: 19860101, end: 20210613
  3. CLOBETASOL [Suspect]
     Active Substance: CLOBETASOL
     Indication: Eczema
     Dosage: HYDROCORTISONE, BETNOVATE, DERMOVATE USED ONCE OR TWICE A DAY, ONGOING
     Route: 061
     Dates: start: 19860101, end: 20210613
  4. MONTELUKAST [Concomitant]
     Active Substance: MONTELUKAST SODIUM
     Dosage: 10MG

REACTIONS (11)
  - Skin irritation [Recovering/Resolving]
  - Formication [Recovering/Resolving]
  - Electric shock sensation [Recovering/Resolving]
  - Pruritus [Recovering/Resolving]
  - Skin burning sensation [Recovering/Resolving]
  - Skin weeping [Recovering/Resolving]
  - Steroid withdrawal syndrome [Unknown]
  - Erythema [Unknown]
  - Steroid dependence [Unknown]
  - Drug ineffective [Unknown]
  - Pain [Unknown]

NARRATIVE: CASE EVENT DATE: 20201101
